FAERS Safety Report 12416717 (Version 1)
Quarter: 2016Q2

REPORT INFORMATION
  Report Type: Spontaneous
  Country: US (occurrence: US)
  Receive Date: 20160530
  Receipt Date: 20160530
  Transmission Date: 20160815
  Serious: No
  Sender: FDA-Public Use
  Company Number: US-WEST-WARD PHARMACEUTICALS CORP.-US-H14001-16-00414

PATIENT
  Age: 29 Year
  Sex: Male
  Weight: 88.53 kg

DRUGS (3)
  1. XANAX [Concomitant]
     Active Substance: ALPRAZOLAM
     Indication: PRODUCT USED FOR UNKNOWN INDICATION
     Route: 065
     Dates: start: 2004
  2. TESTOSTERONE CYPIONATE 200MG/ML INJECTION [Suspect]
     Active Substance: TESTOSTERONE CYPIONATE
     Route: 065
     Dates: end: 20160304
  3. TESTOSTERONE CYPIONATE 200MG/ML INJECTION [Suspect]
     Active Substance: TESTOSTERONE CYPIONATE
     Indication: ANDROGEN DEFICIENCY
     Route: 065
     Dates: start: 2014

REACTIONS (2)
  - Product quality issue [None]
  - Furuncle [Not Recovered/Not Resolved]

NARRATIVE: CASE EVENT DATE: 20160307
